FAERS Safety Report 7534368-4 (Version None)
Quarter: 2011Q2

REPORT INFORMATION
  Report Type: 
  Country: None (occurrence: None)
  Receive Date: 20110608
  Receipt Date: 20110511
  Transmission Date: 20111010
  Serious: No
  Sender: FDA-Public Use
  Company Number: US-AMGEN-USASP2011024438

PATIENT
  Sex: Female

DRUGS (6)
  1. VESICARE [Concomitant]
  2. GLUCOSAMINE CHONDROITIN [Concomitant]
  3. PROLIA [Suspect]
     Indication: OSTEOPOROSIS POSTMENOPAUSAL
     Dosage: 60 MG, Q6MO
     Dates: start: 20101109
  4. VITAMIN D [Concomitant]
  5. CITRACAL                           /00471001/ [Concomitant]
  6. MULTIVITAMIN                       /00097801/ [Concomitant]

REACTIONS (7)
  - MUSCLE SPASMS [None]
  - PRURITUS [None]
  - FLATULENCE [None]
  - RASH [None]
  - INSOMNIA [None]
  - ABDOMINAL DISCOMFORT [None]
  - PAIN IN EXTREMITY [None]
